FAERS Safety Report 5169844-5 (Version None)
Quarter: 2006Q4

REPORT INFORMATION
  Report Type: 
  Country: None (occurrence: None)
  Receive Date: 20061212
  Receipt Date: 20061028
  Transmission Date: 20070319
  Serious: No
  Sender: FDA-Public Use
  Company Number: US-AMGEN-KDL198566

PATIENT
  Sex: Female

DRUGS (2)
  1. SENSIPAR [Suspect]
     Indication: HYPERPARATHYROIDISM SECONDARY
     Route: 065
     Dates: start: 20060101
  2. COREG [Concomitant]
     Route: 065
     Dates: start: 20061001

REACTIONS (3)
  - INSOMNIA [None]
  - SENSORY DISTURBANCE [None]
  - VAGINAL SWELLING [None]
